FAERS Safety Report 12298710 (Version 3)
Quarter: 2016Q3

REPORT INFORMATION
  Report Type: Report from Study
  Country: JP (occurrence: JP)
  Receive Date: 20160425
  Receipt Date: 20160722
  Transmission Date: 20161109
  Serious: Yes (Death, Other)
  Sender: FDA-Public Use
  Company Number: JP-ALXN-A201602271AA

PATIENT
  Age: 17 Year
  Sex: Male

DRUGS (7)
  1. PREDONINE [Concomitant]
     Active Substance: PREDNISOLONE\PREDNISOLONE ACETATE\PREDNISOLONE SODIUM SUCCINATE
     Indication: CHRONIC GRAFT VERSUS HOST DISEASE
     Dosage: 20 MG, TID
     Route: 041
     Dates: start: 20160218, end: 20160418
  2. ADRENAL CORTEX EXTRACT [Concomitant]
     Indication: PRODUCT USED FOR UNKNOWN INDICATION
     Dosage: UNK
     Route: 065
     Dates: start: 20160322
  3. MYCOPHENOLATE MOFETIL. [Concomitant]
     Active Substance: MYCOPHENOLATE MOFETIL
     Indication: CHRONIC GRAFT VERSUS HOST DISEASE
     Dosage: 500 MG, BID
     Route: 048
     Dates: start: 20160218, end: 20160320
  4. SOLIRIS [Suspect]
     Active Substance: ECULIZUMAB
     Indication: HAEMOLYTIC URAEMIC SYNDROME
     Dosage: 900 MG, QW
     Route: 042
     Dates: start: 20160323, end: 20160330
  5. FLUCONAZOLE. [Concomitant]
     Active Substance: FLUCONAZOLE
     Indication: BRONCHOPULMONARY ASPERGILLOSIS
     Dosage: 250 MG, QD
     Route: 048
     Dates: start: 20160318, end: 20160320
  6. VFEND [Concomitant]
     Active Substance: VORICONAZOLE
     Indication: BRONCHOPULMONARY ASPERGILLOSIS
     Dosage: 160 MG, QD
     Route: 041
     Dates: start: 20160328, end: 20160418
  7. AMBISOME [Concomitant]
     Active Substance: AMPHOTERICIN B
     Indication: BRONCHOPULMONARY ASPERGILLOSIS
     Dosage: 200 MG, QD
     Route: 041
     Dates: start: 20160321, end: 20160418

REACTIONS (3)
  - Pulmonary alveolar haemorrhage [Fatal]
  - Bronchopulmonary aspergillosis [Fatal]
  - Drug ineffective [Unknown]

NARRATIVE: CASE EVENT DATE: 20160328
